FAERS Safety Report 15914126 (Version 1)
Quarter: 2019Q1

REPORT INFORMATION
  Report Type: Spontaneous
  Country: US (occurrence: US)
  Receive Date: 20190111
  Receipt Date: 20190111
  Transmission Date: 20190417
  Serious: Yes (Hospitalization)
  Sender: FDA-Public Use
  Company Number: None

PATIENT
  Age: 26 Year
  Sex: Female
  Weight: 58.97 kg

DRUGS (7)
  1. PARAXETINE [Concomitant]
  2. IBUPROFEN. [Concomitant]
     Active Substance: IBUPROFEN
  3. MULTIVITAMIN [Concomitant]
     Active Substance: VITAMINS
  4. OXCARBAZEPINE. [Concomitant]
     Active Substance: OXCARBAZEPINE
  5. FISH OIL [Concomitant]
     Active Substance: FISH OIL
  6. GABAPENTIN. [Suspect]
     Active Substance: GABAPENTIN
     Indication: BRACHIAL PLEXUS INJURY
     Dosage: ?          QUANTITY:1 DF DOSAGE FORM;?
     Route: 048
     Dates: start: 20161220, end: 20180221
  7. IONIPRAMINE [Concomitant]

REACTIONS (2)
  - Galactorrhoea [None]
  - Cholelithiasis [None]

NARRATIVE: CASE EVENT DATE: 20171122
